FAERS Safety Report 8086457 (Version 17)
Quarter: 2014Q4

REPORT INFORMATION
  Report Type: Report from Study
  Country: CA (occurrence: CA)
  Receive Date: 20110811
  Receipt Date: 20141112
  Transmission Date: 20150529
  Serious: Yes (Death, Hospitalization, Other)
  Sender: FDA-Public Use
  Company Number: PHHY2011CA52162

PATIENT
  Age: 73 Year
  Sex: Male

DRUGS (4)
  1. SANDOSTATIN LAR DEPOT [Suspect]
     Active Substance: OCTREOTIDE ACETATE
     Dosage: 60 MG, QW4
     Route: 030
  2. AFINITOR [Suspect]
     Active Substance: EVEROLIMUS
     Indication: NEUROENDOCRINE TUMOUR
     Dosage: 10 MG, QD
     Route: 048
     Dates: start: 20110514, end: 201109
  3. AFINITOR [Suspect]
     Active Substance: EVEROLIMUS
     Dosage: 10 MG, QD
     Route: 048
     Dates: start: 20120114
  4. SANDOSTATIN LAR DEPOT [Suspect]
     Active Substance: OCTREOTIDE ACETATE
     Indication: NEUROENDOCRINE TUMOUR
     Dosage: 40 MG, QMO
     Route: 030
     Dates: start: 20080808

REACTIONS (33)
  - Chills [Unknown]
  - Abdominal pain [Unknown]
  - Blood pressure decreased [Unknown]
  - Rash [Unknown]
  - Pulmonary oedema [Unknown]
  - Renal failure [Recovered/Resolved]
  - Back pain [Not Recovered/Not Resolved]
  - Erythema [Unknown]
  - Abdominal distension [Unknown]
  - Asthenia [Unknown]
  - Pyrexia [Unknown]
  - Ecchymosis [Unknown]
  - Intestinal perforation [Recovering/Resolving]
  - Diabetes mellitus [Unknown]
  - Bronchitis [Recovered/Resolved]
  - Buccal mucosal roughening [Unknown]
  - Pruritus [Unknown]
  - Blood pressure increased [Unknown]
  - Bacterial infection [Unknown]
  - Oedema peripheral [Unknown]
  - Peripheral swelling [Unknown]
  - Pneumonia [Recovered/Resolved]
  - Contusion [Unknown]
  - Death [Fatal]
  - Blood test abnormal [Unknown]
  - Feeling abnormal [Unknown]
  - General physical health deterioration [Unknown]
  - Hypoglycaemia [Unknown]
  - Loss of consciousness [Recovered/Resolved]
  - Pituitary tumour [Unknown]
  - Gastric haemorrhage [Unknown]
  - Fall [Recovered/Resolved]
  - Pain [Unknown]

NARRATIVE: CASE EVENT DATE: 20120111
